FAERS Safety Report 6138749-5 (Version None)
Quarter: 2009Q1

REPORT INFORMATION
  Report Type: 
  Country: None (occurrence: None)
  Receive Date: 20090327
  Receipt Date: 20090313
  Transmission Date: 20090719
  Serious: Yes (Death, Hospitalization, Other)
  Sender: FDA-Public Use
  Company Number: 2009BI005153

PATIENT
  Age: 59 Year
  Sex: Male

DRUGS (11)
  1. ZEVALIN [Suspect]
     Indication: B-CELL SMALL LYMPHOCYTIC LYMPHOMA
     Dosage: 31 MCI, 1X, IV
     Route: 042
     Dates: start: 20081010, end: 20081010
  2. ZEVALIN [Suspect]
     Indication: STEM CELL TRANSPLANT
     Dosage: 31 MCI, 1X, IV
     Route: 042
     Dates: start: 20081010, end: 20081010
  3. RITUXIMAB [Concomitant]
  4. FLUDARABINE PHOSPHATE [Concomitant]
  5. MELPHALAN [Concomitant]
  6. THIOTEPA [Concomitant]
  7. MYCOPHENOLATE MOFETIL [Concomitant]
  8. CYCLOSPORINE [Concomitant]
  9. ITRACONAZOLE [Concomitant]
  10. PREDNISONE [Concomitant]
  11. PREV MED UNKNOWN [Concomitant]

REACTIONS (13)
  - ACUTE RESPIRATORY FAILURE [None]
  - CATHETER RELATED INFECTION [None]
  - CYTOMEGALOVIRUS INFECTION [None]
  - ENTEROCOCCAL INFECTION [None]
  - HEPATIC FUNCTION ABNORMAL [None]
  - MULTI-ORGAN FAILURE [None]
  - OEDEMA [None]
  - PANCYTOPENIA [None]
  - PSEUDOMONAS INFECTION [None]
  - RENAL IMPAIRMENT [None]
  - SEPTIC SHOCK [None]
  - SKIN INFECTION [None]
  - STAPHYLOCOCCAL INFECTION [None]
